FAERS Safety Report 9670822 (Version 1)
Quarter: 2013Q4

REPORT INFORMATION
  Report Type: Spontaneous
  Country: HU (occurrence: HU)
  Receive Date: 20131106
  Receipt Date: 20131106
  Transmission Date: 20140711
  Serious: Yes (Death, Hospitalization)
  Sender: FDA-Public Use
  Company Number: PHHY2013HU121509

PATIENT
  Age: 62 Year
  Sex: Female

DRUGS (2)
  1. METOPROLOL [Suspect]
     Indication: ARRHYTHMIA
  2. AMIODARONE [Suspect]
     Indication: ARRHYTHMIA

REACTIONS (9)
  - Septic shock [Fatal]
  - Sepsis [Unknown]
  - Ischaemic stroke [Unknown]
  - Pyrexia [Unknown]
  - Arrhythmia [Unknown]
  - Ventricular fibrillation [Unknown]
  - Ventricular tachycardia [Unknown]
  - Ventricular extrasystoles [Unknown]
  - Drug ineffective [Unknown]
